FAERS Safety Report 8592862 (Version 2)
Quarter: 2013Q3

REPORT INFORMATION
  Report Type: Spontaneous
  Country: US (occurrence: US)
  Receive Date: 20120604
  Receipt Date: 20130702
  Transmission Date: 20140515
  Serious: Yes (Hospitalization)
  Sender: FDA-Public Use
  Company Number: US-ASTRAZENECA-2012SE34692

PATIENT
  Age: 52 Year
  Sex: Female

DRUGS (6)
  1. NEXIUM [Suspect]
     Indication: GASTROOESOPHAGEAL REFLUX DISEASE
     Route: 048
  2. PROZAC [Concomitant]
  3. CYMBALTA [Concomitant]
  4. THYROXINE [Concomitant]
  5. B 12 [Concomitant]
  6. ESTROGEN [Concomitant]

REACTIONS (4)
  - Gallbladder disorder [Unknown]
  - Osteoporosis [Unknown]
  - Hand fracture [Unknown]
  - Pain in extremity [Unknown]
